FAERS Safety Report 6991444-2 (Version None)
Quarter: 2010Q3

REPORT INFORMATION
  Report Type: 
  Country: None (occurrence: None)
  Receive Date: 20100916
  Receipt Date: 20090824
  Transmission Date: 20110219
  Serious: No
  Sender: FDA-Public Use
  Company Number: US-WYE-H10708409

PATIENT
  Sex: Female
  Weight: 66.28 kg

DRUGS (6)
  1. PRISTIQ [Suspect]
     Indication: DEPRESSION
     Route: 048
     Dates: start: 20090821
  2. PRISTIQ [Suspect]
     Indication: INSOMNIA
  3. PERCOCET [Concomitant]
  4. ZOCOR [Concomitant]
  5. LYRICA [Concomitant]
  6. AMBIEN [Concomitant]

REACTIONS (1)
  - PARAESTHESIA [None]
